FAERS Safety Report 6386432-3 (Version None)
Quarter: 2009Q3

REPORT INFORMATION
  Report Type: 
  Country: None (occurrence: None)
  Receive Date: 20090930
  Receipt Date: 20090930
  Transmission Date: 20100115
  Serious: Yes (Hospitalization)
  Sender: FDA-Public Use
  Company Number: None

PATIENT
  Sex: Female
  Weight: 86.1834 kg

DRUGS (7)
  1. IXABEPILONE CYCLE 1 DAY 1 08/26/09 START DATE [Suspect]
     Indication: COLORECTAL CANCER STAGE IV
     Dosage: 30 MG/M2
     Dates: end: 20090826
  2. SUNITINIB CYCLE 1 DAY 1 08/26/09 START DATE [Suspect]
     Dosage: 37.5 MG
     Dates: end: 20090902
  3. DARVOCET [Concomitant]
  4. NEXIUM [Concomitant]
  5. ASCORBIC ACID [Concomitant]
  6. COUMADIN [Concomitant]
  7. PERCOCET [Concomitant]

REACTIONS (3)
  - ASCITES [None]
  - CONSTIPATION [None]
  - SMALL INTESTINAL OBSTRUCTION [None]
